FAERS Safety Report 8690806 (Version 2)
Quarter: 2013Q4

REPORT INFORMATION
  Report Type: Spontaneous
  Country: US (occurrence: US)
  Receive Date: 20120728
  Receipt Date: 20131031
  Transmission Date: 20140711
  Serious: Yes (Hospitalization)
  Sender: FDA-Public Use
  Company Number: US-009507513-2012SP030632

PATIENT
  Age: 32 Year
  Sex: Female

DRUGS (8)
  1. DULERA [Suspect]
     Indication: ASTHMA
     Dosage: 2 DF, BID (100/5)
     Dates: start: 201110
  2. PROVENTIL [Concomitant]
  3. PRILOSEC [Concomitant]
  4. GLIPIZIDE [Concomitant]
     Dosage: UNK
  5. LANTUS [Concomitant]
  6. LASIX (FUROSEMIDE) [Concomitant]
  7. LISINOPRIL [Concomitant]
  8. ADVAIR [Concomitant]

REACTIONS (2)
  - Asthma [Not Recovered/Not Resolved]
  - Incorrect dose administered [Unknown]
